FAERS Safety Report 15340111 (Version 3)
Quarter: 2018Q4

REPORT INFORMATION
  Report Type: Spontaneous
  Country: JP (occurrence: JP)
  Receive Date: 20180831
  Receipt Date: 20181030
  Transmission Date: 20190204
  Serious: Yes (Life-Threatening)
  Sender: FDA-Public Use
  Company Number: JP-GUERBET-JP-20180205

PATIENT
  Age: 50 Year
  Sex: Male
  Weight: 99.6 kg

DRUGS (1)
  1. MAGNESCOPE INTRAVENOUS INJECTION 38% SYRINGE 20ML [Suspect]
     Active Substance: GADOTERATE MEGLUMINE
     Indication: NUCLEAR MAGNETIC RESONANCE IMAGING
     Route: 040
     Dates: start: 20180823, end: 20180823

REACTIONS (2)
  - Anaphylactic shock [Recovered/Resolved]
  - Hypoxic-ischaemic encephalopathy [Recovered/Resolved]

NARRATIVE: CASE EVENT DATE: 20180823
